FAERS Safety Report 11842293 (Version 1)
Quarter: 2015Q4

REPORT INFORMATION
  Report Type: Spontaneous
  Country: US (occurrence: US)
  Receive Date: 20151216
  Receipt Date: 20151216
  Transmission Date: 20160305
  Serious: No
  Sender: FDA-Public Use
  Company Number: US-RB-075638-15

PATIENT
  Age: 56 Year
  Sex: Female

DRUGS (3)
  1. DELSYM [Suspect]
     Active Substance: DEXTROMETHORPHAN
     Indication: PRODUCT USED FOR UNKNOWN INDICATION
     Dosage: 1DF. ,QD
     Route: 065
     Dates: start: 20150329
  2. DELSYM [Suspect]
     Active Substance: DEXTROMETHORPHAN
     Dosage: 1DF. ,PRN
     Route: 065
     Dates: start: 20150330
  3. MUCINEX [Suspect]
     Active Substance: GUAIFENESIN
     Indication: PRODUCT USED FOR UNKNOWN INDICATION
     Dosage: 1DF. ,QD
     Route: 065
     Dates: start: 20150329

REACTIONS (1)
  - Chromaturia [Recovered/Resolved]

NARRATIVE: CASE EVENT DATE: 20150330
